FAERS Safety Report 5014185-X (Version None)
Quarter: 2006Q2

REPORT INFORMATION
  Report Type: 
  Country: None (occurrence: None)
  Receive Date: 20060414
  Receipt Date: 20060214
  Transmission Date: 20061013
  Serious: No
  Sender: FDA-Public Use
  Company Number: 2006SP000782

PATIENT
  Age: 37 Year
  Sex: Female
  Weight: 90.7194 kg

DRUGS (6)
  1. LUNESTA [Suspect]
     Indication: INSOMNIA
     Dosage: 3 MG;HS;ORAL
     Route: 048
     Dates: start: 20060207, end: 20060212
  2. VALSARTAN [Concomitant]
  3. DURAGESIC-100 [Concomitant]
  4. LIDOCAINE [Concomitant]
  5. ZYRTEC [Concomitant]
  6. CORTISONE ACETATE TAB [Concomitant]

REACTIONS (3)
  - ABDOMINAL PAIN UPPER [None]
  - DYSGEUSIA [None]
  - HEADACHE [None]
